FAERS Safety Report 8849319 (Version 4)
Quarter: 2013Q1

REPORT INFORMATION
  Report Type: Spontaneous
  Country: FR (occurrence: FR)
  Receive Date: 20121017
  Receipt Date: 20130225
  Transmission Date: 20140127
  Serious: Yes (Other)
  Sender: FDA-Public Use
  Company Number: PHHY2012FR075466

PATIENT
  Sex: Male

DRUGS (5)
  1. RASILEZ [Suspect]
     Dates: start: 200909, end: 2011
  2. RASILEZ [Suspect]
     Dosage: 1 DF, QD
     Dates: start: 201203
  3. LOXEN LP [Suspect]
     Indication: HYPERTENSION
     Dosage: 1 DF, BID
     Dates: start: 201204
  4. SELOKEN [Concomitant]
     Indication: COUGH
     Dosage: 1 DF, QD
  5. ZOCOR [Concomitant]

REACTIONS (9)
  - Hyperventilation [Not Recovered/Not Resolved]
  - Dyspnoea [Not Recovered/Not Resolved]
  - Tremor [Not Recovered/Not Resolved]
  - Dyskinesia [Not Recovered/Not Resolved]
  - Depression [Unknown]
  - Anxiety [Not Recovered/Not Resolved]
  - Palpitations [Recovered/Resolved]
  - Constipation [Recovered/Resolved]
  - Nausea [Recovered/Resolved]
